FAERS Safety Report 7952917-9 (Version None)
Quarter: 2011Q4

REPORT INFORMATION
  Report Type: 
  Country: None (occurrence: None)
  Receive Date: 20111201
  Receipt Date: 20111122
  Transmission Date: 20120403
  Serious: Yes (Hospitalization)
  Sender: FDA-Public Use
  Company Number: DE-ABBOTT-11P-062-0876807-00

PATIENT
  Sex: Female

DRUGS (1)
  1. HUMIRA [Suspect]
     Indication: CROHN'S DISEASE
     Route: 058
     Dates: start: 20080626, end: 20110818

REACTIONS (4)
  - ABSCESS INTESTINAL [None]
  - GASTROINTESTINAL STOMA COMPLICATION [None]
  - INTESTINAL STENOSIS [None]
  - INTESTINAL RESECTION [None]
